FAERS Safety Report 20876941 (Version 2)
Quarter: 2022Q3

REPORT INFORMATION
  Report Type: Spontaneous
  Country: US (occurrence: US)
  Receive Date: 20220526
  Receipt Date: 20220712
  Transmission Date: 20221027
  Serious: No
  Sender: FDA-Public Use
  Company Number: US-BAYER-2022A074751

PATIENT
  Age: 77 Year
  Sex: Female

DRUGS (1)
  1. MIRALAX [Suspect]
     Active Substance: POLYETHYLENE GLYCOL 3350
     Indication: Gastrointestinal disorder
     Dosage: 17 G
     Route: 048
     Dates: start: 202204, end: 202204

REACTIONS (2)
  - Nausea [Recovered/Resolved]
  - Product taste abnormal [None]

NARRATIVE: CASE EVENT DATE: 20220401
